FAERS Safety Report 7654554-2 (Version None)
Quarter: 2011Q3

REPORT INFORMATION
  Report Type: 
  Country: None (occurrence: None)
  Receive Date: 20110803
  Receipt Date: 20110728
  Transmission Date: 20111222
  Serious: Yes (Other)
  Sender: FDA-Public Use
  Company Number: GB-MERCK-1010GBR00035

PATIENT
  Age: 60 Year
  Sex: Male

DRUGS (2)
  1. METFORMIN [Concomitant]
     Route: 065
  2. JANUVIA [Suspect]
     Indication: TYPE 2 DIABETES MELLITUS
     Route: 048
     Dates: start: 20100621, end: 20100710

REACTIONS (2)
  - BLISTER [None]
  - OEDEMA PERIPHERAL [None]
